FAERS Safety Report 8231361-3 (Version None)
Quarter: 2012Q1

REPORT INFORMATION
  Report Type: 
  Country: None (occurrence: None)
  Receive Date: 20120323
  Receipt Date: 20120123
  Transmission Date: 20120608
  Serious: No
  Sender: FDA-Public Use
  Company Number: US-PFIZER INC-2012019558

PATIENT

DRUGS (1)
  1. GABAPENTIN [Suspect]
     Dosage: 100 MG, UNK

REACTIONS (2)
  - ABDOMINAL PAIN [None]
  - MALAISE [None]
